FAERS Safety Report 11242801 (Version 1)
Quarter: 2015Q3

REPORT INFORMATION
  Report Type: Spontaneous
  Country: US (occurrence: None)
  Receive Date: 20150701
  Receipt Date: 20150701
  Transmission Date: 20151125
  Serious: No
  Sender: FDA-Public Use
  Company Number: None

PATIENT
  Sex: Female

DRUGS (1)
  1. IBRANCE [Suspect]
     Active Substance: PALBOCICLIB
     Indication: BREAST CANCER
     Dosage: 100MG  QD FOR 21 DAYS/ 7 DAYS OFF   PO
     Route: 048
     Dates: start: 20150413

REACTIONS (2)
  - Vision blurred [None]
  - Memory impairment [None]
